FAERS Safety Report 20754605 (Version 1)
Quarter: 2022Q2

REPORT INFORMATION
  Report Type: Spontaneous
  Country: US (occurrence: None)
  Receive Date: 20220426
  Receipt Date: 20220426
  Transmission Date: 20220720
  Serious: No
  Sender: FDA-Public Use
  Company Number: US-ROCHE-2798506

PATIENT
  Sex: Female

DRUGS (3)
  1. ESBRIET [Suspect]
     Active Substance: PIRFENIDONE
     Indication: Interstitial lung disease
     Dosage: DAYS 1-7 TAKE 1 TABLET BY MOUTH THREE TIMES DAILY
     Route: 048
  2. ESBRIET [Suspect]
     Active Substance: PIRFENIDONE
     Dosage: DAYS 8- 14 TAKE 2 TABLETS BY MOUTH THREE TIMES DAILY
     Route: 048
  3. ESBRIET [Suspect]
     Active Substance: PIRFENIDONE
     Dosage: DAY 15 AND ON TAKE 3 TABLETS THREE TIMES DAILY
     Route: 048

REACTIONS (3)
  - Headache [Unknown]
  - Nausea [Unknown]
  - Diarrhoea [Unknown]
